FAERS Safety Report 16542201 (Version 1)
Quarter: 2019Q3

REPORT INFORMATION
  Report Type: Spontaneous
  Country: FR (occurrence: FR)
  Receive Date: 20190708
  Receipt Date: 20190708
  Transmission Date: 20191004
  Serious: Yes (Other)
  Sender: FDA-Public Use
  Company Number: FR-ALLERGAN-1927961US

PATIENT
  Sex: Female
  Weight: 51 kg

DRUGS (7)
  1. IPERTEN [Concomitant]
     Active Substance: MANIDIPINE
     Dosage: 20 MG, QD
     Route: 048
  2. CRESTOR [Concomitant]
     Active Substance: ROSUVASTATIN CALCIUM
     Dosage: 5 MG, QD
     Route: 048
  3. ELIQUIS [Concomitant]
     Active Substance: APIXABAN
     Dosage: 5 MG, QD
     Route: 048
  4. TEMERIT DUO [Concomitant]
     Active Substance: HYDROCHLOROTHIAZIDE\NEBIVOLOL HYDROCHLORIDE
     Dosage: 1 DF, QD
     Route: 048
  5. MEMANTINE HCL - BP [Suspect]
     Active Substance: MEMANTINE
     Indication: DEMENTIA ALZHEIMER^S TYPE
     Dosage: UNK
     Route: 048
     Dates: start: 20190121, end: 2019
  6. UVEDOSE [Concomitant]
     Active Substance: CHOLECALCIFEROL
     Dosage: 1 DF, Q3MONTHS
     Route: 048
  7. NORSET [Concomitant]
     Active Substance: MIRTAZAPINE
     Dosage: 15 MG, QD
     Route: 048

REACTIONS (6)
  - Condition aggravated [Recovered/Resolved]
  - Delirium [Recovered/Resolved]
  - Hallucination, visual [Recovered/Resolved]
  - Somnolence [Recovered/Resolved]
  - Chills [Recovered/Resolved]
  - Headache [Recovered/Resolved]

NARRATIVE: CASE EVENT DATE: 201901
